FAERS Safety Report 8329680-5 (Version None)
Quarter: 2012Q2

REPORT INFORMATION
  Report Type: 
  Country: None (occurrence: None)
  Receive Date: 20120502
  Receipt Date: 20120424
  Transmission Date: 20120825
  Serious: Yes (Death, Hospitalization)
  Sender: FDA-Public Use
  Company Number: US-GLAXOSMITHKLINE-A0967910A

PATIENT
  Age: 42 Year
  Sex: Female
  Weight: 56.7 kg

DRUGS (11)
  1. SPIRONOLACTONE + HYDROCHLOROTHIAZIDE [Concomitant]
     Route: 048
  2. SYNTHROID [Concomitant]
     Dosage: 200MCG PER DAY
     Route: 048
  3. SPIRIVA [Concomitant]
     Dosage: 18MCG PER DAY
     Route: 055
  4. ADVAIR DISKUS 100/50 [Concomitant]
     Dosage: 1PUFF PER DAY
  5. FLOLAN [Suspect]
     Indication: PULMONARY ARTERIAL HYPERTENSION
     Dosage: 20NGKM UNKNOWN
     Route: 042
     Dates: start: 20090225
  6. ZOFRAN [Concomitant]
     Dosage: 4MG AS REQUIRED
  7. IMITREX [Concomitant]
     Dosage: 25MG AS REQUIRED
     Route: 048
  8. VICODIN [Suspect]
     Indication: PAIN
     Dosage: 37TAB PER DAY
     Route: 048
  9. LASIX [Concomitant]
     Dosage: 80MG TWICE PER DAY
     Route: 048
  10. OXYGEN [Concomitant]
     Dosage: 3L CONTINUOUS
  11. OXYCONTIN [Concomitant]
     Dosage: 30MG TWICE PER DAY
     Route: 048

REACTIONS (4)
  - PULMONARY HYPERTENSION [None]
  - DEATH [None]
  - OVERDOSE [None]
  - UNRESPONSIVE TO STIMULI [None]
